FAERS Safety Report 7166988-3 (Version None)
Quarter: 2010Q4

REPORT INFORMATION
  Report Type: 
  Country: None (occurrence: None)
  Receive Date: 20101216
  Receipt Date: 20101213
  Transmission Date: 20110411
  Serious: Yes (Hospitalization)
  Sender: FDA-Public Use
  Company Number: A0880672A

PATIENT
  Age: 76 Year
  Sex: Male

DRUGS (5)
  1. PROMACTA [Suspect]
     Indication: PLATELET COUNT
     Dosage: 50MG PER DAY
     Route: 048
     Dates: start: 20100806, end: 20100916
  2. CRESTOR [Concomitant]
  3. UNKNOWN [Concomitant]
  4. TYLENOL (CAPLET) [Concomitant]
  5. CORTICOSTEROIDS [Concomitant]
     Indication: IDIOPATHIC THROMBOCYTOPENIC PURPURA

REACTIONS (8)
  - ASTHENIA [None]
  - CHEST PAIN [None]
  - ERYTHEMA [None]
  - MALAISE [None]
  - NAUSEA [None]
  - PLEURAL EFFUSION [None]
  - PYREXIA [None]
  - SKIN WARM [None]
